FAERS Safety Report 5225655-3 (Version None)
Quarter: 2007Q1

REPORT INFORMATION
  Report Type: 
  Country: None (occurrence: None)
  Receive Date: 20061201
  Receipt Date: 20061010
  Transmission Date: 20070707
  Serious: No
  Sender: FDA-Public Use
  Company Number: USA0510112174

PATIENT
  Age: 38 Year
  Sex: Female

DRUGS (5)
  1. CYMBALTA [Suspect]
     Dosage: SEE IMAGE
     Dates: end: 20051101
  2. CYMBALTA [Suspect]
     Dosage: SEE IMAGE
     Dates: start: 20051101, end: 20051201
  3. CYMBALTA [Suspect]
     Dosage: SEE IMAGE
     Dates: start: 20051201
  4. AMBIEN [Concomitant]
  5. MOTRIN [Concomitant]

REACTIONS (8)
  - ABORTION SPONTANEOUS [None]
  - DEPRESSION [None]
  - DISTURBANCE IN ATTENTION [None]
  - DRUG EXPOSURE DURING PREGNANCY [None]
  - DRUG WITHDRAWAL SYNDROME [None]
  - IMPAIRED SELF-CARE [None]
  - INSOMNIA [None]
  - MEMORY IMPAIRMENT [None]
